FAERS Safety Report 18998921 (Version 7)
Quarter: 2022Q3

REPORT INFORMATION
  Report Type: Report from Study
  Country: US (occurrence: US)
  Receive Date: 20210311
  Receipt Date: 20220926
  Transmission Date: 20221027
  Serious: Yes (Death, Hospitalization, Other)
  Sender: FDA-Public Use
  Company Number: US-TAKEDA-2021TUS013799

PATIENT
  Age: 80 Year
  Sex: Female
  Weight: 34 kg

DRUGS (51)
  1. HUMAN IMMUNOGLOBULIN G\HYALURONIDASE RECOMBINANT HUMAN [Suspect]
     Active Substance: HUMAN IMMUNOGLOBULIN G\HYALURONIDASE RECOMBINANT HUMAN
     Indication: Immunodeficiency common variable
     Dosage: 20 GRAM, Q4WEEKS
     Route: 058
     Dates: start: 20160411
  2. HUMAN IMMUNOGLOBULIN G\HYALURONIDASE RECOMBINANT HUMAN [Suspect]
     Active Substance: HUMAN IMMUNOGLOBULIN G\HYALURONIDASE RECOMBINANT HUMAN
     Indication: Idiopathic pulmonary fibrosis
     Dosage: 20 GRAM, Q4WEEKS
     Route: 058
     Dates: start: 20100819
  3. ACETAMINOPHEN [Concomitant]
     Active Substance: ACETAMINOPHEN
     Dosage: UNK
     Route: 065
  4. DIPHENHYDRAMINE [Concomitant]
     Active Substance: DIPHENHYDRAMINE
     Dosage: UNK
     Route: 065
  5. LIDOCAINE [Concomitant]
     Active Substance: LIDOCAINE
     Dosage: UNK
     Route: 065
  6. LIDOCAINE\PRILOCAINE [Concomitant]
     Active Substance: LIDOCAINE\PRILOCAINE
     Dosage: UNK
     Route: 065
  7. SODIUM CHLORIDE [Concomitant]
     Active Substance: SODIUM CHLORIDE
     Dosage: UNK
     Route: 065
  8. APRISO [Concomitant]
     Active Substance: MESALAMINE
     Dosage: UNK
     Route: 065
  9. EPINEPHRINE [Concomitant]
     Active Substance: EPINEPHRINE
     Route: 065
  10. BUDESONIDE [Concomitant]
     Active Substance: BUDESONIDE
     Dosage: UNK
     Route: 065
  11. CHLORDIAZEPOXIDE HYDROCHLORIDE;CLIDINIUM [Concomitant]
     Dosage: UNK
     Route: 065
  12. DIETARY SUPPLEMENT [Concomitant]
     Active Substance: DIETARY SUPPLEMENT
     Dosage: UNK
     Route: 065
  13. POTASSIUM [Concomitant]
     Active Substance: POTASSIUM
     Dosage: UNK
     Route: 065
  14. ASACOL HD [Concomitant]
     Active Substance: MESALAMINE
     Dosage: UNK
     Route: 065
  15. LOPERAMIDE HYDROCHLORIDE [Concomitant]
     Active Substance: LOPERAMIDE HYDROCHLORIDE
     Dosage: UNK
     Route: 065
  16. PHAZYME [Concomitant]
     Active Substance: DIMETHICONE 410
  17. ATROPINE\DIPHENOXYLATE [Concomitant]
     Active Substance: ATROPINE\DIPHENOXYLATE
     Route: 065
  18. BENTYL [Concomitant]
     Active Substance: DICYCLOMINE HYDROCHLORIDE
     Route: 065
  19. DIFICID [Concomitant]
     Active Substance: FIDAXOMICIN
     Route: 065
  20. DURAGESIC [Concomitant]
     Active Substance: FENTANYL
     Route: 065
  21. PANTOPRAZOLE [Concomitant]
     Active Substance: PANTOPRAZOLE
     Route: 065
  22. TRAMADOL [Concomitant]
     Active Substance: TRAMADOL
     Route: 065
  23. HYDROXYZINE [Concomitant]
     Active Substance: HYDROXYZINE HYDROCHLORIDE
  24. CELECOXIB [Concomitant]
     Active Substance: CELECOXIB
  25. TRIAMCINOLONE [Concomitant]
     Active Substance: TRIAMCINOLONE
  26. CLOBETASOL [Concomitant]
     Active Substance: CLOBETASOL
  27. HYDROCHLOROTHIAZIDE [Concomitant]
     Active Substance: HYDROCHLOROTHIAZIDE
  28. DIETARY SUPPLEMENT [Concomitant]
     Active Substance: DIETARY SUPPLEMENT
  29. BIFIDOBACTERIUM ANIMALIS LACTIS [Concomitant]
     Active Substance: BIFIDOBACTERIUM ANIMALIS LACTIS
  30. DIAZEPAM [Concomitant]
     Active Substance: DIAZEPAM
  31. KETOCONAZOLE [Concomitant]
     Active Substance: KETOCONAZOLE
  32. CURCUMIN [Concomitant]
     Active Substance: CURCUMIN
  33. DICLOFENAC POTASSIUM [Concomitant]
     Active Substance: DICLOFENAC POTASSIUM
  34. NAPHAZOLINE HYDROCHLORIDE [Concomitant]
     Active Substance: NAPHAZOLINE HYDROCHLORIDE
  35. LOPERAMIDE [Concomitant]
     Active Substance: LOPERAMIDE
  36. CREON [Concomitant]
     Active Substance: PANCRELIPASE AMYLASE\PANCRELIPASE LIPASE\PANCRELIPASE PROTEASE
  37. ZOLPIDEM [Concomitant]
     Active Substance: ZOLPIDEM TARTRATE
  38. SIMVASTATIN [Concomitant]
     Active Substance: SIMVASTATIN
  39. ESTRADIOL [Concomitant]
     Active Substance: ESTRADIOL
  40. VITAMIN D3 [Concomitant]
     Active Substance: CHOLECALCIFEROL
  41. PROGESTERONE [Concomitant]
     Active Substance: PROGESTERONE
  42. LEVOTHYROXINE [Concomitant]
     Active Substance: LEVOTHYROXINE
  43. LYRICA [Concomitant]
     Active Substance: PREGABALIN
  44. VANOS [Concomitant]
     Active Substance: FLUOCINONIDE
  45. PATADAY [Concomitant]
     Active Substance: OLOPATADINE HYDROCHLORIDE
  46. CLIDINIUM [Concomitant]
     Active Substance: CLIDINIUM
  47. POTASSIUM CHLORIDE [Concomitant]
     Active Substance: POTASSIUM CHLORIDE
  48. HYDROXYZINE HYDROCHLORIDE [Concomitant]
     Active Substance: HYDROXYZINE HYDROCHLORIDE
  49. TRAMADOL HCL [Concomitant]
     Active Substance: TRAMADOL HYDROCHLORIDE
  50. ZOLPIDEM TARTRATE [Concomitant]
     Active Substance: ZOLPIDEM TARTRATE
  51. LEVOTHYROXINE SODIUM [Concomitant]
     Active Substance: LEVOTHYROXINE SODIUM

REACTIONS (11)
  - Death [Fatal]
  - Pulmonary contusion [Unknown]
  - Hospice care [Not Recovered/Not Resolved]
  - Cough [Unknown]
  - Fatigue [Unknown]
  - Dyspnoea [Unknown]
  - Histamine level increased [Unknown]
  - Arthropod bite [Unknown]
  - Therapy interrupted [Unknown]
  - Inappropriate schedule of product administration [Unknown]
  - Product use in unapproved indication [Unknown]

NARRATIVE: CASE EVENT DATE: 20220527
